FAERS Safety Report 8831403 (Version 1)
Quarter: 2012Q4

REPORT INFORMATION
  Report Type: 
  Country: US (occurrence: US)
  Receive Date: 20121008
  Receipt Date: 20121008
  Transmission Date: 20130627
  Serious: Yes (Death)
  Sender: FDA-Public Use
  Company Number: US-ASTRAZENECA-2012SE76297

PATIENT
  Sex: Female

DRUGS (2)
  1. ETHYOL [Suspect]
     Dosage: UNKNOWN
     Route: 042
  2. ETHYOL [Suspect]
     Dosage: 710 DOSE, UNKNOWN
     Route: 042

REACTIONS (2)
  - Blood pressure abnormal [Fatal]
  - Therapeutic response unexpected [Unknown]
